FAERS Safety Report 4940465-X (Version None)
Quarter: 2006Q1

REPORT INFORMATION
  Report Type: 
  Country: None (occurrence: None)
  Receive Date: 20060131
  Receipt Date: 20051227
  Transmission Date: 20060701
  Serious: No
  Sender: FDA-Public Use
  Company Number: 200520864US

PATIENT
  Age: 36 Year
  Sex: Female
  Weight: 51 kg

DRUGS (3)
  1. KETEK [Suspect]
     Indication: LYME DISEASE
     Dosage: 400 MG QD PO
     Route: 048
     Dates: start: 20051215
  2. SUPPLEMENTS [Concomitant]
  3. NEDOCROMIL SODIUM (TILADE) [Concomitant]

REACTIONS (2)
  - DIZZINESS [None]
  - HEART RATE INCREASED [None]
